FAERS Safety Report 16000322 (Version 4)
Quarter: 2019Q2

REPORT INFORMATION
  Report Type: Spontaneous
  Country: US (occurrence: US)
  Receive Date: 20190225
  Receipt Date: 20190430
  Transmission Date: 20190711
  Serious: Yes (Hospitalization, Other)
  Sender: FDA-Public Use
  Company Number: US-PFIZER INC-2019077113

PATIENT
  Age: 78 Year
  Sex: Male
  Weight: 82.99 kg

DRUGS (1)
  1. TYGACIL [Suspect]
     Active Substance: TIGECYCLINE
     Indication: INFECTION
     Dosage: 50 MG, 2X/DAY (Q 12 HRS)
     Route: 042

REACTIONS (1)
  - Mycobacterium abscessus infection [Unknown]
